FAERS Safety Report 9099428 (Version 1)
Quarter: 2013Q1

REPORT INFORMATION
  Report Type: Spontaneous
  Country: US (occurrence: US)
  Receive Date: 20130214
  Receipt Date: 20130214
  Transmission Date: 20140127
  Serious: No
  Sender: FDA-Public Use
  Company Number: US-009507513-1210USA012065

PATIENT
  Age: 64 Year
  Sex: Male
  Weight: 78.91 kg

DRUGS (1)
  1. ZOCOR [Suspect]
     Indication: HYPERCHOLESTEROLAEMIA
     Dosage: UNK, QD
     Route: 048
     Dates: start: 2009, end: 2011

REACTIONS (16)
  - Thyroid neoplasm [Recovering/Resolving]
  - Muscle rupture [Recovering/Resolving]
  - Myalgia [Recovering/Resolving]
  - Hypertension [Unknown]
  - Back pain [Unknown]
  - Benign prostatic hyperplasia [Unknown]
  - Arthralgia [Unknown]
  - Large intestine polyp [Unknown]
  - Sciatica [Unknown]
  - Erectile dysfunction [Unknown]
  - Intention tremor [Unknown]
  - Neck pain [Unknown]
  - Left ventricular hypertrophy [Unknown]
  - Cervical radiculopathy [Unknown]
  - Toxic nodular goitre [Unknown]
  - Hyperthyroidism [Unknown]
